FAERS Safety Report 6400513-7 (Version None)
Quarter: 2009Q4

REPORT INFORMATION
  Report Type: 
  Country: None (occurrence: None)
  Receive Date: 20091014
  Receipt Date: 20091012
  Transmission Date: 20100525
  Serious: Yes (Hospitalization)
  Sender: FDA-Public Use
  Company Number: IN-ROXANE LABORATORIES, INC.-2009-RO-01040RO

PATIENT
  Age: 23 Year
  Sex: Male

DRUGS (13)
  1. AZATHIOPRINE [Suspect]
     Indication: LUPUS NEPHRITIS
     Dosage: 100 MG
     Route: 048
     Dates: start: 20080101
  2. CYCLOPHOSPHAMIDE [Suspect]
     Indication: LUPUS NEPHRITIS
     Route: 042
  3. FUROSEMIDE [Suspect]
     Indication: LUPUS NEPHRITIS
  4. PREDNISOLONE [Suspect]
     Indication: LUPUS NEPHRITIS
     Route: 048
  5. PREDNISOLONE [Suspect]
     Dosage: 20 MG
  6. ENALAPRIL MALEATE [Suspect]
     Indication: LUPUS NEPHRITIS
  7. MYCOPHENOLATE MOFETIL [Concomitant]
     Indication: URINARY SEDIMENT PRESENT
     Dosage: 1000 MG
  8. AMLODIPINE [Concomitant]
  9. GRANULOCYTE-MACROPHAGE COLONY-STIMULATING FACTOR [Concomitant]
     Indication: PYREXIA
  10. HYDROXYCHLOROQUIN [Concomitant]
  11. LOSARTAN POSTASSIUM [Concomitant]
  12. ATENOLOL [Concomitant]
  13. BROAD SPECTRUM ANTIBIOTICS [Concomitant]
     Indication: FEBRILE NEUTROPENIA

REACTIONS (5)
  - COUGH [None]
  - HEADACHE [None]
  - PANCYTOPENIA [None]
  - PYREXIA [None]
  - RENAL IMPAIRMENT [None]
